FAERS Safety Report 4473583-3 (Version None)
Quarter: 2004Q4

REPORT INFORMATION
  Report Type: 
  Country: None (occurrence: None)
  Receive Date: 20040909
  Receipt Date: 20040616
  Transmission Date: 20050328
  Serious: Yes (Hospitalization)
  Sender: FDA-Public Use
  Company Number: F03200400069

PATIENT
  Age: 55 Year
  Sex: Male
  Weight: 71 kg

DRUGS (10)
  1. ELOXATIN - OXALIPLATIN - SOLUTION 237 MG [Suspect]
     Indication: PANCREATIC CARCINOMA
     Dosage: 130 MG/M2 Q2W - INTRAVENOUS NOS
     Route: 042
     Dates: start: 20040528, end: 20040528
  2. CAPECITABINE - 2000 MG/M2 [Suspect]
     Indication: PANCREATIC CARCINOMA
     Dosage: 2000 MG/M2 TAKEN AS 2 DIVIDED DOSES DAILY FOR 14 DAYS - ORAL
     Route: 048
     Dates: start: 20040506, end: 20040609
  3. PANTOPRAZOLE SODIUM [Concomitant]
  4. PANCREATIN [Concomitant]
  5. TAMSULOSIN HYDROCHLORIDE [Concomitant]
  6. ACETAMINOPHEN + OXYCODONE HCL [Concomitant]
  7. MULTI-VITAMIN [Concomitant]
  8. VITAMIN C [Concomitant]
  9. OPIUM TINCTURE [Concomitant]
  10. DIFENOXIN HYDROCHLORIDE [Concomitant]

REACTIONS (2)
  - DIARRHOEA [None]
  - OVERGROWTH BACTERIAL [None]
